FAERS Safety Report 7680561-X (Version None)
Quarter: 2011Q3

REPORT INFORMATION
  Report Type: 
  Country: None (occurrence: None)
  Receive Date: 20110812
  Receipt Date: 20110803
  Transmission Date: 20111222
  Serious: Yes (Hospitalization)
  Sender: FDA-Public Use
  Company Number: US-ASTRAZENECA-2011SE46426

PATIENT
  Age: 28370 Day
  Sex: Female

DRUGS (3)
  1. CRESTOR [Suspect]
     Dosage: DAILY
     Route: 048
     Dates: start: 20110603
  2. LASIX [Concomitant]
  3. POTASSIUM [Concomitant]

REACTIONS (3)
  - COLITIS [None]
  - HEADACHE [None]
  - NAUSEA [None]
